FAERS Safety Report 14336504 (Version 1)
Quarter: 2017Q4

REPORT INFORMATION
  Report Type: Spontaneous
  Country: US (occurrence: US)
  Receive Date: 20171229
  Receipt Date: 20171229
  Transmission Date: 20180321
  Serious: No
  Sender: FDA-Public Use
  Company Number: US-009507513-1712USA003093

PATIENT
  Sex: Male

DRUGS (2)
  1. KEYTRUDA [Suspect]
     Active Substance: PEMBROLIZUMAB
     Indication: NON-SMALL CELL LUNG CANCER
     Dosage: 200 MG EVERY 3 WEEKS OVER 30 MINUTE INFUSION
     Route: 042
  2. CARBOPLATIN (+) PEMETREXED DISODIUM [Concomitant]
     Dosage: UNK

REACTIONS (1)
  - Pneumonitis [Recovering/Resolving]
